FAERS Safety Report 5941220-4 (Version None)
Quarter: 2008Q4

REPORT INFORMATION
  Report Type: 
  Country: None (occurrence: None)
  Receive Date: 20081104
  Receipt Date: 20081023
  Transmission Date: 20090506
  Serious: Yes (Disabling)
  Sender: FDA-Public Use
  Company Number: US-PFIZER INC-2008089959

PATIENT
  Sex: Female

DRUGS (4)
  1. ADRIAMYCIN PFS [Suspect]
     Indication: BREAST CANCER
     Dosage: FREQ:EVERY THREE WEEKS
     Dates: start: 20080604, end: 20080806
  2. CYCLOPHOSPHAMIDE [Suspect]
     Indication: BREAST CANCER
     Dosage: FREQ:EVERY THREE WEEKS
     Dates: start: 20080604, end: 20080806
  3. DOCETAXEL [Suspect]
     Indication: BREAST CANCER
     Dosage: FREQ:EVERY THREE WEEKS
     Route: 042
     Dates: start: 20080604, end: 20080806
  4. ALOXI [Suspect]
     Indication: PROPHYLAXIS OF NAUSEA AND VOMITING

REACTIONS (1)
  - HEADACHE [None]
